FAERS Safety Report 5828223-5 (Version None)
Quarter: 2008Q3

REPORT INFORMATION
  Report Type: 
  Country: None (occurrence: None)
  Receive Date: 20080729
  Receipt Date: 20080721
  Transmission Date: 20090109
  Serious: Yes (Death, Hospitalization)
  Sender: FDA-Public Use
  Company Number: 2008BI015689

PATIENT
  Age: 47 Year
  Sex: Female

DRUGS (1)
  1. AVONEX [Suspect]
     Indication: MULTIPLE SCLEROSIS
     Dosage: 30 UG;QW;IM
     Route: 030
     Dates: start: 20031107, end: 20080521

REACTIONS (9)
  - ACUTE MYOCARDIAL INFARCTION [None]
  - ASPARTATE AMINOTRANSFERASE INCREASED [None]
  - BLOOD CREATINE INCREASED [None]
  - BLOOD UREA INCREASED [None]
  - GINGIVAL BLEEDING [None]
  - HAEMATOCRIT DECREASED [None]
  - HAEMOGLOBIN DECREASED [None]
  - PLATELET COUNT DECREASED [None]
  - WHITE BLOOD CELL COUNT INCREASED [None]
